FAERS Safety Report 11471909 (Version 1)
Quarter: 2015Q3

REPORT INFORMATION
  Report Type: Spontaneous
  Country: BR (occurrence: BR)
  Receive Date: 20150908
  Receipt Date: 20150908
  Transmission Date: 20151125
  Serious: Yes (Other)
  Sender: FDA-Public Use
  Company Number: CHPA2015BR010426

PATIENT
  Sex: Male

DRUGS (1)
  1. OTRIVINA [Suspect]
     Active Substance: XYLOMETAZOLINE
     Indication: PRODUCT USED FOR UNKNOWN INDICATION
     Dosage: UNK, 0.1% 15 ML
     Route: 065

REACTIONS (3)
  - Drug dependence [Unknown]
  - Drug interaction [Unknown]
  - Incorrect drug administration duration [Unknown]
